FAERS Safety Report 19005506 (Version 1)
Quarter: 2021Q1

REPORT INFORMATION
  Report Type: Report from Study
  Country: US (occurrence: US)
  Receive Date: 20210313
  Receipt Date: 20210313
  Transmission Date: 20210420
  Serious: Yes (Life-Threatening, Other)
  Sender: FDA-Public Use
  Company Number: NVSC2021US056290

PATIENT
  Age: 35 Year
  Sex: Female

DRUGS (3)
  1. CYCLOPHOSPHAMIDE. [Concomitant]
     Active Substance: CYCLOPHOSPHAMIDE
     Indication: CHEMOTHERAPY
     Dosage: UNK
     Route: 065
  2. FLUDARABINE [Concomitant]
     Active Substance: FLUDARABINE PHOSPHATE
     Indication: CHEMOTHERAPY
     Dosage: UNK
     Route: 065
  3. KYMRIAH [Suspect]
     Active Substance: TISAGENLECLEUCEL
     Indication: DIFFUSE LARGE B-CELL LYMPHOMA
     Dosage: UNK, ONCE/SINGLE
     Route: 041
     Dates: start: 20200212

REACTIONS (17)
  - Hemiparesis [Unknown]
  - Pyrexia [Unknown]
  - Aphasia [Unknown]
  - Cytokine release syndrome [Recovered/Resolved]
  - Motor dysfunction [Unknown]
  - Burning sensation [Unknown]
  - Brain oedema [Unknown]
  - Facial paralysis [Unknown]
  - Escherichia infection [Unknown]
  - Neurotoxicity [Recovered/Resolved]
  - Depressed level of consciousness [Unknown]
  - Paraparesis [Unknown]
  - Staphylococcal infection [Unknown]
  - Photophobia [Unknown]
  - Platelet count decreased [Unknown]
  - Vision blurred [Unknown]
  - Neutrophil count decreased [Recovered/Resolved]
